FAERS Safety Report 6576083-X (Version None)
Quarter: 2010Q1

REPORT INFORMATION
  Report Type: 
  Country: None (occurrence: None)
  Receive Date: 20100209
  Receipt Date: 20100202
  Transmission Date: 20100710
  Serious: Yes (Hospitalization)
  Sender: FDA-Public Use
  Company Number: PHHO2010JP02101

PATIENT
  Sex: Female
  Weight: 55 kg

DRUGS (16)
  1. NEORAL [Suspect]
     Indication: RENAL TRANSPLANT
     Dosage: 50MG
     Route: 048
     Dates: start: 20081127, end: 20090116
  2. NEORAL [Suspect]
     Dosage: 200MG
     Route: 048
     Dates: start: 20081127
  3. NEORAL [Suspect]
     Dosage: 150MG
     Route: 048
     Dates: start: 20090330
  4. MYCOPHENOLATE MOFETIL [Suspect]
     Indication: RENAL TRANSPLANT
     Dosage: 1500MG
     Route: 048
     Dates: start: 20081129, end: 20090101
  5. MYCOPHENOLATE MOFETIL [Suspect]
     Dosage: 1000MG
     Route: 048
     Dates: start: 20090101, end: 20090201
  6. MYCOPHENOLATE MOFETIL [Suspect]
     Dosage: 500MG
     Route: 048
     Dates: start: 20090201
  7. PREDONINE [Suspect]
     Indication: RENAL TRANSPLANT
     Dosage: UNK
     Dates: start: 20081205
  8. BAKTAR [Concomitant]
  9. PARIET [Concomitant]
  10. PURSENNID [Concomitant]
  11. ASPIRIN [Concomitant]
  12. ALLOID [Concomitant]
  13. LOCHOL [Concomitant]
  14. AMLODIPINE [Concomitant]
  15. LAC B [Concomitant]
  16. POSTERISAN [Concomitant]

REACTIONS (1)
  - HYPERPARATHYROIDISM SECONDARY [None]
